FAERS Safety Report 10542739 (Version 1)
Quarter: 2014Q4

REPORT INFORMATION
  Report Type: Spontaneous
  Country: US (occurrence: None)
  Receive Date: 20141023
  Receipt Date: 20141023
  Transmission Date: 20150529
  Serious: No
  Sender: FDA-Public Use
  Company Number: None

PATIENT
  Age: 51 Year
  Sex: Female

DRUGS (1)
  1. TACROLIMUS. [Suspect]
     Active Substance: TACROLIMUS
     Dosage: 4 QAM  3 QPM ORAL
     Route: 048

REACTIONS (3)
  - Cough [None]
  - Rash [None]
  - Oral disorder [None]

NARRATIVE: CASE EVENT DATE: 20140915
